FAERS Safety Report 5946657-5 (Version None)
Quarter: 2008Q4

REPORT INFORMATION
  Report Type: 
  Country: None (occurrence: None)
  Receive Date: 20081110
  Receipt Date: 20081103
  Transmission Date: 20090506
  Serious: Yes (Hospitalization, Other)
  Sender: FDA-Public Use
  Company Number: US-BRISTOL-MYERS SQUIBB COMPANY-14356570

PATIENT
  Age: 59 Year
  Sex: Male
  Weight: 57 kg

DRUGS (1)
  1. SPRYCEL [Suspect]
     Indication: RETROPERITONEAL CANCER
     Dosage: INTERRUPTED 29SEP08,RESTARTED 16OCT08 AT 50 MG PO BID; INTERRUPTED AGAIN ON 27OCT08
     Route: 048
     Dates: start: 20080101

REACTIONS (3)
  - BLOOD SODIUM DECREASED [None]
  - HAEMOGLOBIN DECREASED [None]
  - SMALL INTESTINAL OBSTRUCTION [None]
